FAERS Safety Report 7691755-1 (Version None)
Quarter: 2011Q3

REPORT INFORMATION
  Report Type: 
  Country: None (occurrence: None)
  Receive Date: 20110818
  Receipt Date: 20110810
  Transmission Date: 20111222
  Serious: Yes (Hospitalization)
  Sender: FDA-Public Use
  Company Number: FR-GLAXOSMITHKLINE-B0738591A

PATIENT
  Age: 38 Year
  Sex: Male

DRUGS (2)
  1. ESCITALOPRAM OXALATE [Concomitant]
     Indication: BIPOLAR DISORDER
     Route: 065
  2. LAMICTAL [Suspect]
     Indication: BIPOLAR DISORDER
     Route: 048
     Dates: start: 20110520, end: 20110716

REACTIONS (6)
  - RASH MORBILLIFORM [None]
  - BLISTER [None]
  - NASAL ULCER [None]
  - STEVENS-JOHNSON SYNDROME [None]
  - MOUTH ULCERATION [None]
  - GENITAL ULCERATION [None]
